FAERS Safety Report 6814926-2 (Version None)
Quarter: 2010Q3

REPORT INFORMATION
  Report Type: 
  Country: None (occurrence: None)
  Receive Date: 20100702
  Receipt Date: 20100628
  Transmission Date: 20110219
  Serious: Yes (Hospitalization)
  Sender: FDA-Public Use
  Company Number: FR-ROCHE-712058

PATIENT
  Sex: Female

DRUGS (9)
  1. RIVOTRIL [Suspect]
     Dosage: STRENGTH: 2.5 MG/ML, FORM: SOLUTION DROP
     Route: 048
     Dates: start: 20091102, end: 20091103
  2. AMITRIPTYLINE HCL [Suspect]
     Route: 048
     Dates: start: 20091031
  3. NOVOMIX [Suspect]
     Route: 058
     Dates: start: 20091102, end: 20091103
  4. NOVOMIX [Suspect]
     Dosage: 10 IN MORNING AND 10 IN EVENING
     Route: 058
     Dates: start: 20091103, end: 20091103
  5. OXYCODONE HCL [Suspect]
     Indication: CANCER PAIN
     Dosage: STRENGTH: 10 MG/ML, FORM:INJECTABLE SOLUTION
     Route: 042
     Dates: start: 20091102
  6. FLUCONAZOLE [Suspect]
     Route: 048
     Dates: start: 20091102, end: 20091103
  7. FUNGIZONE [Concomitant]
     Route: 048
     Dates: start: 20091022, end: 20091103
  8. LYRICA [Concomitant]
     Route: 048
     Dates: start: 20091024
  9. SOLUPRED [Concomitant]
     Route: 048
     Dates: start: 20091031

REACTIONS (1)
  - HYPOGLYCAEMIA [None]
